FAERS Safety Report 8563556-3 (Version None)
Quarter: 2012Q3

REPORT INFORMATION
  Report Type: 
  Country: None (occurrence: None)
  Receive Date: 20120803
  Receipt Date: 20120730
  Transmission Date: 20120928
  Serious: Yes (Hospitalization, Other)
  Sender: FDA-Public Use
  Company Number: US-AMGEN-USASP2012047507

PATIENT
  Age: 65 Year
  Sex: Female

DRUGS (1)
  1. ENBREL [Suspect]
     Indication: RHEUMATOID ARTHRITIS
     Dosage: UNK
     Dates: start: 20100301

REACTIONS (7)
  - LYMPHOEDEMA [None]
  - IMPAIRED HEALING [None]
  - FRACTURED SACRUM [None]
  - ANIMAL SCRATCH [None]
  - INFECTION [None]
  - BREAST CANCER STAGE IV [None]
  - WOUND [None]
